FAERS Safety Report 13548184 (Version 1)
Quarter: 2017Q2

REPORT INFORMATION
  Report Type: Spontaneous
  Country: US (occurrence: US)
  Receive Date: 20170516
  Receipt Date: 20170516
  Transmission Date: 20170830
  Serious: No
  Sender: FDA-Public Use
  Company Number: US-JNJFOC-20170305708

PATIENT
  Age: 5 Decade
  Sex: Female

DRUGS (2)
  1. WOMENS ROGAINE UNSCENTED [Suspect]
     Active Substance: MINOXIDIL
     Indication: ALOPECIA
     Dosage: 1/2 CAP, DAILY
     Route: 061
     Dates: start: 201610
  2. WOMENS ROGAINE UNSCENTED [Suspect]
     Active Substance: MINOXIDIL
     Route: 061

REACTIONS (1)
  - Seborrhoea [Unknown]
